FAERS Safety Report 7394560-9 (Version None)
Quarter: 2011Q2

REPORT INFORMATION
  Report Type: 
  Country: None (occurrence: None)
  Receive Date: 20110405
  Receipt Date: 20110329
  Transmission Date: 20111010
  Serious: Yes (Other)
  Sender: FDA-Public Use
  Company Number: US-BRACCO-005960

PATIENT
  Sex: Male
  Weight: 77 kg

DRUGS (14)
  1. ISOVUE-370 [Suspect]
     Indication: HEART TRANSPLANT
     Dates: start: 20101129, end: 20101129
  2. SIROLIMUS [Concomitant]
  3. ASPIRIN [Concomitant]
     Route: 048
  4. CHOLECALCIFEROL [Concomitant]
     Route: 065
  5. LEVOTHYROXINE SODIUM [Concomitant]
  6. MULTI-VITAMIN [Concomitant]
     Dosage: 1 CAPSULE DAILY
     Route: 048
  7. NEORAL [Concomitant]
  8. ALL OTHER THERAPEUTIC PRODUCTS [Concomitant]
  9. AMLODIPINE BESYLATE [Concomitant]
  10. NPH INSULIN [Concomitant]
     Dosage: 15 UNITS QHS
  11. ISOVUE-370 [Suspect]
     Indication: CATHETERISATION CARDIAC
     Dates: start: 20101129, end: 20101129
  12. SIMVASTATIN [Suspect]
     Indication: BLOOD CHOLESTEROL INCREASED
     Route: 048
     Dates: start: 20091118
  13. SIMVASTATIN [Suspect]
     Dates: end: 20101220
  14. LOVAZA [Concomitant]
     Route: 048

REACTIONS (1)
  - RHABDOMYOLYSIS [None]
